FAERS Safety Report 14965345 (Version 1)
Quarter: 2018Q2

REPORT INFORMATION
  Report Type: Spontaneous
  Country: US (occurrence: US)
  Receive Date: 20180601
  Receipt Date: 20180601
  Transmission Date: 20180711
  Serious: No
  Sender: FDA-Public Use
  Company Number: US-GILEAD-2018-0341631

PATIENT
  Age: 86 Year
  Sex: Female

DRUGS (1)
  1. RANEXA [Suspect]
     Active Substance: RANOLAZINE
     Indication: CHEST PAIN
     Route: 065

REACTIONS (4)
  - Erythema [Unknown]
  - Swelling [Unknown]
  - Pruritus [Unknown]
  - Skin reaction [Unknown]
